FAERS Safety Report 16880707 (Version 1)
Quarter: 2019Q4

REPORT INFORMATION
  Report Type: Spontaneous
  Country: US (occurrence: US)
  Receive Date: 20191003
  Receipt Date: 20191003
  Transmission Date: 20200122
  Serious: No
  Sender: FDA-Public Use
  Company Number: US-PFIZER INC-2019421101

PATIENT
  Age: 61 Year
  Sex: Female
  Weight: 49.89 kg

DRUGS (3)
  1. ZYVOX [Suspect]
     Active Substance: LINEZOLID
     Dosage: 600 MG, 2X/DAY
     Route: 048
     Dates: start: 20190712
  2. METHOTREXATE. [Concomitant]
     Active Substance: METHOTREXATE
     Indication: RHEUMATOID ARTHRITIS
     Dosage: 20 MG, WEEKLY, (2.5MG, TABLETS, BY MOUTH, EVERY FRIDAY)
     Route: 048
  3. ZYVOX [Suspect]
     Active Substance: LINEZOLID
     Indication: MYOCARDITIS INFECTIOUS
     Dosage: 600 MG, 2X/DAY
     Route: 048
     Dates: start: 201901

REACTIONS (5)
  - Nausea [Recovered/Resolved]
  - Dehydration [Recovered/Resolved]
  - Vomiting [Recovered/Resolved]
  - Diarrhoea [Recovered/Resolved]
  - Feeling abnormal [Recovered/Resolved]
